FAERS Safety Report 4354975-X (Version None)
Quarter: 2004Q2

REPORT INFORMATION
  Report Type: 
  Country: None (occurrence: None)
  Receive Date: 20040504
  Receipt Date: 20040422
  Transmission Date: 20050107
  Serious: Yes (Other)
  Sender: FDA-Public Use
  Company Number: GBWYE667126MAR04

PATIENT
  Age: 67 Year
  Sex: Male

DRUGS (6)
  1. CYCLOSPORINE [Suspect]
     Indication: IMMUNOSUPPRESSANT DRUG THERAPY
     Dosage: SEE IMAGE ORAL
     Route: 048
     Dates: start: 19970211, end: 20040101
  2. CYCLOSPORINE [Suspect]
     Indication: IMMUNOSUPPRESSANT DRUG THERAPY
     Dosage: SEE IMAGE ORAL
     Route: 048
     Dates: start: 20040101
  3. FLUVASTATIN (FLUVASTATIN) [Concomitant]
  4. ASPIRIN [Concomitant]
  5. ALLOPURINOL [Concomitant]
  6. ADALAT [Concomitant]

REACTIONS (3)
  - BASAL CELL CARCINOMA [None]
  - DISEASE RECURRENCE [None]
  - SKIN LESION [None]
